FAERS Safety Report 5488038-7 (Version None)
Quarter: 2007Q4

REPORT INFORMATION
  Report Type: 
  Country: None (occurrence: None)
  Receive Date: 20071012
  Receipt Date: 20071012
  Transmission Date: 20080405
  Serious: Yes (Other)
  Sender: FDA-Public Use
  Company Number: None

PATIENT
  Age: 53 Year
  Sex: Female
  Weight: 72.5755 kg

DRUGS (1)
  1. BONIVA [Suspect]

REACTIONS (10)
  - BARRETT'S OESOPHAGUS [None]
  - BONE PAIN [None]
  - CHEST PAIN [None]
  - DRUG TOXICITY [None]
  - DYSPNOEA [None]
  - DYSURIA [None]
  - EXERCISE TOLERANCE DECREASED [None]
  - MOVEMENT DISORDER [None]
  - OESOPHAGEAL STENOSIS [None]
  - OESOPHAGEAL ULCER [None]
